FAERS Safety Report 14167639 (Version 2)
Quarter: 2017Q4

REPORT INFORMATION
  Report Type: Report from Study
  Country: JP (occurrence: JP)
  Receive Date: 20171108
  Receipt Date: 20171201
  Transmission Date: 20180321
  Serious: Yes (Hospitalization, Other)
  Sender: FDA-Public Use
  Company Number: JP-ALXN-A201704225AA

PATIENT
  Age: 12 Year
  Sex: Female
  Weight: 19.5 kg

DRUGS (6)
  1. CALCIUM LACTATE [Concomitant]
     Active Substance: CALCIUM LACTATE
     Indication: HYPOPHOSPHATASIA
     Dosage: 0.5 G, TID
     Route: 048
     Dates: start: 20170414
  2. STRENSIQ [Suspect]
     Active Substance: ASFOTASE ALFA
     Dosage: 2 MG/KG, BIW
     Route: 058
     Dates: start: 20170428, end: 20170724
  3. STRENSIQ [Suspect]
     Active Substance: ASFOTASE ALFA
     Dosage: 2 MG/KG, TIW
     Route: 058
     Dates: start: 20160729, end: 20160930
  4. STRENSIQ [Suspect]
     Active Substance: ASFOTASE ALFA
     Dosage: 2 MG/KG, TIW
     Route: 058
     Dates: start: 20170412, end: 20170424
  5. STRENSIQ [Suspect]
     Active Substance: ASFOTASE ALFA
     Indication: HYPOPHOSPHATASIA
     Dosage: 1 MG/KG, SIX TIMES/WEEK
     Route: 058
     Dates: start: 20160725, end: 20160727
  6. STRENSIQ [Suspect]
     Active Substance: ASFOTASE ALFA
     Dosage: 40 MG, DAILY
     Route: 058
     Dates: start: 20170807

REACTIONS (7)
  - Pyrexia [Recovering/Resolving]
  - Inappropriate schedule of drug administration [Unknown]
  - Conductive deafness [Unknown]
  - Tooth loss [Unknown]
  - Injection site swelling [Recovered/Resolved]
  - Nasopharyngitis [Recovering/Resolving]
  - Colitis ulcerative [Recovering/Resolving]

NARRATIVE: CASE EVENT DATE: 20170412
